FAERS Safety Report 8151748-7 (Version None)
Quarter: 2012Q1

REPORT INFORMATION
  Report Type: 
  Country: None (occurrence: None)
  Receive Date: 20120221
  Receipt Date: 20120208
  Transmission Date: 20120608
  Serious: No
  Sender: FDA-Public Use
  Company Number: US-BIOGENIDEC-2011BI028216

PATIENT
  Age: 44 Year
  Sex: Female

DRUGS (3)
  1. BENADRYL [Concomitant]
  2. TYSABRI [Suspect]
     Indication: MULTIPLE SCLEROSIS
     Route: 042
     Dates: start: 20080220
  3. BENADRYL [Concomitant]
     Indication: PROPHYLAXIS

REACTIONS (4)
  - RASH PRURITIC [None]
  - RASH PAPULAR [None]
  - DRUG INTERACTION [None]
  - BIOPSY SKIN ABNORMAL [None]
